FAERS Safety Report 13060399 (Version 1)
Quarter: 2016Q4

REPORT INFORMATION
  Report Type: Report from Study
  Country: US (occurrence: US)
  Receive Date: 20161224
  Receipt Date: 20161224
  Transmission Date: 20170207
  Serious: No
  Sender: FDA-Public Use
  Company Number: US-009507513-1612USA007755

PATIENT
  Sex: Female

DRUGS (2)
  1. EMEND [Suspect]
     Active Substance: APREPITANT
     Indication: VOMITING
     Dosage: UNK
     Route: 048
     Dates: start: 2016
  2. EMEND [Suspect]
     Active Substance: APREPITANT
     Indication: NAUSEA

REACTIONS (1)
  - Adverse event [Unknown]

NARRATIVE: CASE EVENT DATE: 2016
